FAERS Safety Report 7904410-7 (Version None)
Quarter: 2011Q4

REPORT INFORMATION
  Report Type: 
  Country: None (occurrence: None)
  Receive Date: 20111109
  Receipt Date: 20111103
  Transmission Date: 20120403
  Serious: Yes (Hospitalization)
  Sender: FDA-Public Use
  Company Number: DE-ABBOTT-11P-062-0871703-00

PATIENT
  Sex: Female

DRUGS (2)
  1. TILIDIN [Concomitant]
     Indication: PRODUCT USED FOR UNKNOWN INDICATION
  2. HUMIRA [Suspect]
     Indication: RHEUMATOID ARTHRITIS
     Route: 058
     Dates: start: 20101001

REACTIONS (9)
  - CAROTID ARTERY DISEASE [None]
  - CEREBROVASCULAR ACCIDENT [None]
  - NAUSEA [None]
  - STRESS [None]
  - TOOTH EXTRACTION [None]
  - CARPAL TUNNEL SYNDROME [None]
  - DIZZINESS [None]
  - VISUAL IMPAIRMENT [None]
  - CARDIOVASCULAR DISORDER [None]
